FAERS Safety Report 8036674-6 (Version None)
Quarter: 2012Q1

REPORT INFORMATION
  Report Type: 
  Country: None (occurrence: None)
  Receive Date: 20120111
  Receipt Date: 20110520
  Transmission Date: 20120608
  Serious: Yes (Other)
  Sender: FDA-Public Use
  Company Number: JP-ROCHE-1029008

PATIENT

DRUGS (2)
  1. AVASTIN [Suspect]
     Indication: OVARIAN CANCER
  2. DOXORUBICIN HCL [Suspect]
     Indication: OVARIAN CANCER

REACTIONS (2)
  - PALMAR-PLANTAR ERYTHRODYSAESTHESIA SYNDROME [None]
  - GASTROINTESTINAL PERFORATION [None]
